FAERS Safety Report 13592709 (Version 1)
Quarter: 2017Q2

REPORT INFORMATION
  Report Type: Spontaneous
  Country: US (occurrence: US)
  Receive Date: 20170530
  Receipt Date: 20170530
  Transmission Date: 20170830
  Serious: Yes (Hospitalization, Other)
  Sender: FDA-Public Use
  Company Number: PHEH2017US015288

PATIENT
  Age: 78 Year
  Sex: Female
  Weight: 63.9 kg

DRUGS (2)
  1. MEKINIST [Suspect]
     Active Substance: TRAMETINIB DIMETHYL SULFOXIDE
     Indication: METASTASES TO LUNG
     Dosage: UNK UNK, QD
     Route: 048
     Dates: start: 20160606
  2. TAFINLAR [Suspect]
     Active Substance: DABRAFENIB MESYLATE
     Indication: METASTASES TO LUNG
     Dosage: UNK UNK, BID
     Route: 048
     Dates: start: 20160606

REACTIONS (4)
  - Systemic lupus erythematosus [Recovering/Resolving]
  - Skin discolouration [Recovering/Resolving]
  - Rash [Unknown]
  - Pyrexia [Unknown]

NARRATIVE: CASE EVENT DATE: 20161018
